FAERS Safety Report 18671036 (Version 1)
Quarter: 2020Q4

REPORT INFORMATION
  Report Type: Spontaneous
  Country: US (occurrence: US)
  Receive Date: 20201228
  Receipt Date: 20201228
  Transmission Date: 20210114
  Serious: No
  Sender: FDA-Public Use
  Company Number: US-BIOGEN-2020BI00959903

PATIENT
  Sex: Female

DRUGS (1)
  1. VUMERITY [Suspect]
     Active Substance: DIROXIMEL FUMARATE
     Indication: MULTIPLE SCLEROSIS
     Route: 048
     Dates: start: 20201117

REACTIONS (7)
  - Crying [Unknown]
  - Fear [Unknown]
  - Stress [Unknown]
  - Panic reaction [Unknown]
  - Frustration tolerance decreased [Unknown]
  - Tremor [Unknown]
  - Anxiety [Unknown]
